FAERS Safety Report 25824150 (Version 2)
Quarter: 2025Q4

REPORT INFORMATION
  Report Type: Spontaneous
  Country: EU (occurrence: EU)
  Receive Date: 20250919
  Receipt Date: 20251006
  Transmission Date: 20260118
  Serious: Yes (Other)
  Sender: BOEHRINGER INGELHEIM
  Company Number: EU-BoehringerIngelheim-2025-BI-096455

PATIENT
  Age: 62 Year
  Sex: Female
  Weight: 62 kg

DRUGS (1)
  1. NINTEDANIB [Suspect]
     Active Substance: NINTEDANIB
     Indication: Idiopathic pulmonary fibrosis
     Dates: start: 20250106, end: 20250508

REACTIONS (4)
  - Idiopathic pulmonary fibrosis [Unknown]
  - Diarrhoea [Recovered/Resolved]
  - Forced vital capacity decreased [Unknown]
  - Lung diffusion test decreased [Unknown]

NARRATIVE: CASE EVENT DATE: 20250410
